FAERS Safety Report 6835806-2 (Version None)
Quarter: 2010Q3

REPORT INFORMATION
  Report Type: 
  Country: None (occurrence: None)
  Receive Date: 20100712
  Receipt Date: 20100712
  Transmission Date: 20110219
  Serious: Yes (Other)
  Sender: FDA-Public Use
  Company Number: None

PATIENT
  Age: 59 Year
  Sex: Female
  Weight: 58.9676 kg

DRUGS (1)
  1. NITROFURANTOIN MACROCRYSTALLINE [Suspect]
     Indication: PROPHYLAXIS URINARY TRACT INFECTION
     Dates: start: 20100708, end: 20100710

REACTIONS (4)
  - CHEST PAIN [None]
  - IMPAIRED WORK ABILITY [None]
  - PRODUCT QUALITY ISSUE [None]
  - VOMITING [None]
